FAERS Safety Report 14509101 (Version 1)
Quarter: 2018Q1

REPORT INFORMATION
  Report Type: Spontaneous
  Country: US (occurrence: US)
  Receive Date: 20180207
  Receipt Date: 20180207
  Transmission Date: 20180509
  Serious: Yes (Life-Threatening, Hospitalization)
  Sender: FDA-Public Use
  Company Number: None

PATIENT
  Age: 56 Year
  Sex: Male
  Weight: 125 kg

DRUGS (2)
  1. LIRAGLUTIDE [Suspect]
     Active Substance: LIRAGLUTIDE
     Indication: DIABETES MELLITUS
     Route: 058
     Dates: start: 20180124, end: 20180127
  2. LISINOPRIL. [Suspect]
     Active Substance: LISINOPRIL
     Indication: HYPERTENSION
     Route: 048
     Dates: start: 20080311, end: 20180127

REACTIONS (13)
  - Face oedema [None]
  - Periorbital oedema [None]
  - Oedema mouth [None]
  - Laryngeal oedema [None]
  - Angioedema [None]
  - Diarrhoea [None]
  - Anaphylactic reaction [None]
  - Rash [None]
  - Vomiting [None]
  - Hypertensive crisis [None]
  - Nausea [None]
  - Lip oedema [None]
  - Tachycardia [None]

NARRATIVE: CASE EVENT DATE: 20180127
